FAERS Safety Report 10526466 (Version 3)
Quarter: 2015Q3

REPORT INFORMATION
  Report Type: Spontaneous
  Country: US (occurrence: US)
  Receive Date: 20141020
  Receipt Date: 20150717
  Transmission Date: 20151125
  Serious: Yes (Death, Other)
  Sender: FDA-Public Use
  Company Number: US-AMGEN-USASP2014073994

PATIENT
  Age: 67 Year
  Sex: Female

DRUGS (1)
  1. ENBREL [Suspect]
     Active Substance: ETANERCEPT
     Indication: RHEUMATOID ARTHRITIS
     Dosage: 50 MG, QWK
     Route: 065
     Dates: start: 201409

REACTIONS (5)
  - Death [Fatal]
  - Injection site erythema [Not Recovered/Not Resolved]
  - Cerebrovascular accident [Recovered/Resolved]
  - Injection site rash [Not Recovered/Not Resolved]
  - Amyotrophic lateral sclerosis [Unknown]

NARRATIVE: CASE EVENT DATE: 2014
